FAERS Safety Report 26112963 (Version 1)
Quarter: 2025Q4

REPORT INFORMATION
  Report Type: Spontaneous
  Country: EU (occurrence: EU)
  Receive Date: 20251202
  Receipt Date: 20251202
  Transmission Date: 20260118
  Serious: Yes (Hospitalization, Other)
  Sender: CLINIGEN
  Company Number: None

PATIENT

DRUGS (2)
  1. FOSCAVIR [Suspect]
     Active Substance: FOSCARNET SODIUM
     Indication: Cytomegalovirus infection
     Dosage: 6 GRAM
     Route: 042
     Dates: start: 20251023, end: 20251025
  2. FOSCAVIR [Suspect]
     Active Substance: FOSCARNET SODIUM
     Dosage: 18 GRAM
     Route: 042
     Dates: start: 20251025, end: 20251025

REACTIONS (4)
  - Acute kidney injury [Recovering/Resolving]
  - Diarrhoea [Recovered/Resolved]
  - Hypervolaemia [Recovering/Resolving]
  - Incorrect dose administered [Recovered/Resolved]

NARRATIVE: CASE EVENT DATE: 20251025
